FAERS Safety Report 8258930-9 (Version None)
Quarter: 2012Q2

REPORT INFORMATION
  Report Type: 
  Country: None (occurrence: None)
  Receive Date: 20120404
  Receipt Date: 20120320
  Transmission Date: 20120825
  Serious: Yes (Hospitalization)
  Sender: FDA-Public Use
  Company Number: HK-ROCHE-1051295

PATIENT
  Sex: Male

DRUGS (12)
  1. CLOTRIMAZOLE [Concomitant]
     Dates: start: 20120224
  2. DILTIAZEM HCL [Concomitant]
     Dates: start: 20120224
  3. FLUTICASONE FUROATE [Concomitant]
     Dates: start: 20120224
  4. ACETYLCYSTEINE [Concomitant]
     Dates: start: 20120224
  5. XELODA [Suspect]
     Indication: NASOPHARYNGEAL CANCER
     Dosage: LAST DOSE PRIOR TO SAE: 09/FEB/2012
     Route: 048
     Dates: start: 20120127
  6. CHLORPHENIRAMINE MALEATE [Concomitant]
     Dates: start: 20120301
  7. ALBUTEROL [Concomitant]
     Dates: start: 20120224
  8. TIOTROPIUM [Concomitant]
     Dates: start: 20120224
  9. CISPLATIN [Suspect]
     Indication: NASOPHARYNGEAL CANCER
     Dosage: LAST DOSE PRIOR TO SAE: 28/JAN/2012
     Route: 042
     Dates: start: 20120127
  10. FAMOTIDINE [Concomitant]
     Dates: start: 20120224
  11. SALMETEROL [Concomitant]
     Dates: start: 20120224
  12. CARBOPLATIN [Suspect]
     Indication: NASOPHARYNGEAL CANCER
     Route: 042
     Dates: start: 20120305

REACTIONS (1)
  - CHRONIC OBSTRUCTIVE PULMONARY DISEASE [None]
